FAERS Safety Report 9192449 (Version 1)
Quarter: 2013Q1

REPORT INFORMATION
  Report Type: Spontaneous
  Country: US (occurrence: None)
  Receive Date: 20130326
  Receipt Date: 20130326
  Transmission Date: 20140127
  Serious: No
  Sender: FDA-Public Use
  Company Number: None

PATIENT
  Sex: Male
  Weight: 87 kg

DRUGS (2)
  1. DOCETAXEL (TAXOTERE) [Suspect]
  2. LEUPROLIDE ACETATE [Suspect]

REACTIONS (9)
  - Asthenia [None]
  - Confusional state [None]
  - Agitation [None]
  - Hypotension [None]
  - Sepsis [None]
  - Heart rate increased [None]
  - Respiratory failure [None]
  - Gallbladder oedema [None]
  - Pleural effusion [None]
